FAERS Safety Report 16661411 (Version 4)
Quarter: 2020Q1

REPORT INFORMATION
  Report Type: Spontaneous
  Country: DE (occurrence: DE)
  Receive Date: 20190802
  Receipt Date: 20200117
  Transmission Date: 20200409
  Serious: Yes (Other)
  Sender: FDA-Public Use
  Company Number: DE-ASTRAZENECA-2019SF06572

PATIENT
  Sex: Male
  Weight: 3.5 kg

DRUGS (4)
  1. POLAMIDON [Concomitant]
     Active Substance: LEVOMETHADONE
     Indication: EXPOSURE DURING PREGNANCY
     Dosage: 6.0ML UNKNOWN
     Route: 064
     Dates: start: 201812
  2. POLAMIDON [Concomitant]
     Active Substance: LEVOMETHADONE
     Indication: DRUG DEPENDENCE
     Dosage: 6.0ML UNKNOWN
     Route: 064
     Dates: start: 201812
  3. SEROQUEL [Suspect]
     Active Substance: QUETIAPINE FUMARATE
     Indication: EXPOSURE DURING PREGNANCY
     Dosage: 100.0MG UNKNOWN
     Route: 064
  4. SEROQUEL [Suspect]
     Active Substance: QUETIAPINE FUMARATE
     Indication: DRUG DEPENDENCE
     Dosage: 100.0MG UNKNOWN
     Route: 064

REACTIONS (3)
  - Thrombocytopenia neonatal [Recovered/Resolved]
  - Drug withdrawal syndrome neonatal [Unknown]
  - Foetal exposure during pregnancy [Unknown]

NARRATIVE: CASE EVENT DATE: 2019
